FAERS Safety Report 9798509 (Version 1)
Quarter: 2014Q1

REPORT INFORMATION
  Report Type: Spontaneous
  Country: US (occurrence: US)
  Receive Date: 20140106
  Receipt Date: 20140106
  Transmission Date: 20141002
  Serious: No
  Sender: FDA-Public Use
  Company Number: US-BAYER-2014-001238

PATIENT
  Age: 89 Year
  Sex: Male

DRUGS (1)
  1. ALEVE CAPLET [Suspect]
     Indication: ANALGESIC THERAPY
     Dosage: 1 DF, BID
     Dates: start: 2012

REACTIONS (1)
  - Incorrect drug administration duration [None]
